FAERS Safety Report 8764750 (Version 2)
Quarter: 2012Q4

REPORT INFORMATION
  Report Type: 
  Country: AU (occurrence: AU)
  Receive Date: 20120831
  Receipt Date: 20120831
  Transmission Date: 20130627
  Serious: Yes (Death)
  Sender: FDA-Public Use
  Company Number: AU-ROCHE-1102957

PATIENT
  Age: 56 Year
  Sex: Male

DRUGS (3)
  1. CAPECITABINE [Suspect]
     Indication: COLON CANCER
     Route: 048
  2. CAPECITABINE [Suspect]
     Route: 048
  3. OXALIPLATIN [Suspect]
     Indication: COLON CANCER
     Route: 048

REACTIONS (1)
  - Posterior reversible encephalopathy syndrome [Fatal]
